FAERS Safety Report 19952841 (Version 1)
Quarter: 2021Q4

REPORT INFORMATION
  Report Type: Spontaneous
  Country: JP (occurrence: JP)
  Receive Date: 20211013
  Receipt Date: 20211013
  Transmission Date: 20220303
  Serious: Yes (Other)
  Sender: FDA-Public Use
  Company Number: JP-APOTEX-2021AP044178

PATIENT
  Age: 25 Year
  Sex: Female

DRUGS (2)
  1. PAXIL [Suspect]
     Active Substance: PAROXETINE HYDROCHLORIDE
     Indication: Product used for unknown indication
     Dosage: UNK
     Route: 065
  2. COMIRNATY [Concomitant]
     Active Substance: TOZINAMERAN
     Indication: Product used for unknown indication
     Dosage: UNK
     Route: 065

REACTIONS (10)
  - Anaphylactic reaction [Unknown]
  - Pruritus [Unknown]
  - Malaise [Unknown]
  - Dyspnoea [Unknown]
  - Pharyngeal oedema [Unknown]
  - Therapy cessation [Unknown]
  - Hypersensitivity [Unknown]
  - Abdominal pain [Unknown]
  - Diarrhoea [Unknown]
  - Withdrawal syndrome [Unknown]
